FAERS Safety Report 9555772 (Version 1)
Quarter: 2013Q3

REPORT INFORMATION
  Report Type: Report from Study
  Country: CA (occurrence: CA)
  Receive Date: 20130926
  Receipt Date: 20130926
  Transmission Date: 20140515
  Serious: Yes (Other)
  Sender: FDA-Public Use
  Company Number: CA-JNJFOC-20130912085

PATIENT
  Age: 38 Year
  Sex: Female
  Weight: 70 kg

DRUGS (4)
  1. REMICADE [Suspect]
     Indication: CROHN^S DISEASE
     Route: 042
     Dates: start: 20130918
  2. REMICADE [Suspect]
     Indication: CROHN^S DISEASE
     Route: 042
     Dates: start: 20050415
  3. ADALAT [Concomitant]
     Route: 065
  4. WATER PILL NOS [Concomitant]
     Route: 065

REACTIONS (2)
  - Iritis [Unknown]
  - Blood pressure increased [Not Recovered/Not Resolved]
